FAERS Safety Report 6725304-9 (Version None)
Quarter: 2010Q2

REPORT INFORMATION
  Report Type: 
  Country: None (occurrence: None)
  Receive Date: 20100514
  Receipt Date: 20100506
  Transmission Date: 20101027
  Serious: Yes (Hospitalization, Other)
  Sender: FDA-Public Use
  Company Number: US-ALEXION-A201000482

PATIENT
  Sex: Male

DRUGS (1)
  1. SOLIRIS [Suspect]
     Route: 042

REACTIONS (12)
  - CHILLS [None]
  - COLD SWEAT [None]
  - COUGH [None]
  - ERYTHEMA [None]
  - FATIGUE [None]
  - HAEMOGLOBIN DECREASED [None]
  - HYPOTENSION [None]
  - LOCALISED INFECTION [None]
  - OEDEMA PERIPHERAL [None]
  - PYREXIA [None]
  - SEPTIC SHOCK [None]
  - TREMOR [None]
